FAERS Safety Report 8575965 (Version 2)
Quarter: 2012Q4

REPORT INFORMATION
  Report Type: Spontaneous
  Country: DK (occurrence: None)
  Receive Date: 20120516
  Receipt Date: 20120830
  Transmission Date: 20130627
  Serious: Yes (Other)
  Sender: FDA-Public Use
  Company Number: 2012MA005985

PATIENT
  Age: 23 Year
  Sex: Male

DRUGS (7)
  1. GEMCITABINE HYDROCHLORIDE [Suspect]
     Indication: EWING^S SARCOMA METASTATIC
     Dosage: 1400 MG;X3;IV
     Route: 042
  2. LYRICA [Concomitant]
  3. OXYCONTIN [Concomitant]
  4. OXYNORM [Concomitant]
  5. AMITRIPTYLINE HYDROCHLORIDE [Concomitant]
  6. ESOMEPRAZOLE MAGNESIUM [Concomitant]
  7. DOMPERIDONE [Concomitant]

REACTIONS (2)
  - Dizziness [None]
  - Balance disorder [None]
